FAERS Safety Report 10460157 (Version 2)
Quarter: 2014Q3

REPORT INFORMATION
  Report Type: Spontaneous
  Country: RU (occurrence: RU)
  Receive Date: 20140917
  Receipt Date: 20140922
  Transmission Date: 20150326
  Serious: Yes (Hospitalization, Other)
  Sender: FDA-Public Use
  Company Number: RU-PFIZER INC-2014252441

PATIENT
  Age: 67 Year
  Sex: Male

DRUGS (1)
  1. SUTENT [Suspect]
     Active Substance: SUNITINIB MALATE
     Indication: METASTATIC RENAL CELL CARCINOMA
     Dosage: 50 MG NO,28, CYCLIC (4/2)
     Route: 048
     Dates: start: 201310, end: 201409

REACTIONS (7)
  - Anaemia [Not Recovered/Not Resolved]
  - Thrombocytopenia [Recovered/Resolved]
  - Generalised oedema [Recovered/Resolved]
  - Proteinuria [Recovering/Resolving]
  - Scleral haemorrhage [Recovered/Resolved]
  - Blood pressure increased [Recovered/Resolved]
  - Hypoproteinaemia [Recovered/Resolved]

NARRATIVE: CASE EVENT DATE: 201409
